FAERS Safety Report 9475612 (Version 1)
Quarter: 2013Q3

REPORT INFORMATION
  Report Type: Report from Study
  Country: AU (occurrence: AU)
  Receive Date: 20130826
  Receipt Date: 20130826
  Transmission Date: 20140515
  Serious: Yes (Other)
  Sender: FDA-Public Use
  Company Number: PHHY2013AU090665

PATIENT
  Sex: Female

DRUGS (4)
  1. CLOZAPINE [Suspect]
  2. LITHIUM CARBONATE [Suspect]
  3. OLANZAPINE [Concomitant]
  4. QUETIAPINE [Concomitant]

REACTIONS (1)
  - Serotonin syndrome [Unknown]
